FAERS Safety Report 19175359 (Version 1)
Quarter: 2021Q2

REPORT INFORMATION
  Report Type: Spontaneous
  Country: US (occurrence: US)
  Receive Date: 20210423
  Receipt Date: 20210423
  Transmission Date: 20210717
  Serious: Yes (Other)
  Sender: FDA-Public Use
  Company Number: US-GLAXOSMITHKLINE-US2021086451

PATIENT
  Age: 65 Year
  Sex: Male

DRUGS (3)
  1. TRELEGY ELLIPTA [Suspect]
     Active Substance: FLUTICASONE FUROATE\UMECLIDINIUM BROMIDE\VILANTEROL TRIFENATATE
     Indication: PRODUCT USED FOR UNKNOWN INDICATION
     Dosage: 100 PUFF(S), QD, 200/62.5/25
     Route: 055
     Dates: start: 20210403, end: 20210416
  2. TRELEGY ELLIPTA [Suspect]
     Active Substance: FLUTICASONE FUROATE\UMECLIDINIUM BROMIDE\VILANTEROL TRIFENATATE
     Dosage: 1 PUFF(S), Z (2 TO 3 TIMES PER WEEK)
  3. FLONASE [Concomitant]
     Active Substance: FLUTICASONE PROPIONATE
     Indication: PRODUCT USED FOR UNKNOWN INDICATION
     Dosage: UNK

REACTIONS (16)
  - Nasal dryness [Unknown]
  - Abdominal discomfort [Unknown]
  - Tremor [Recovered/Resolved]
  - Off label use [Unknown]
  - Circumstance or information capable of leading to medication error [Unknown]
  - Choking [Unknown]
  - Underdose [Unknown]
  - Product use in unapproved indication [Unknown]
  - Dysphonia [Unknown]
  - Dysgeusia [Unknown]
  - Dry mouth [Unknown]
  - Chills [Unknown]
  - Increased upper airway secretion [Unknown]
  - Upper-airway cough syndrome [Unknown]
  - Enteritis [Recovered/Resolved]
  - Gastrointestinal disorder [Recovered/Resolved]

NARRATIVE: CASE EVENT DATE: 20210416
